FAERS Safety Report 8270237-2 (Version None)
Quarter: 2012Q2

REPORT INFORMATION
  Report Type: 
  Country: None (occurrence: None)
  Receive Date: 20120405
  Receipt Date: 20120329
  Transmission Date: 20120825
  Serious: Yes (Hospitalization)
  Sender: FDA-Public Use
  Company Number: CL-401-2012

PATIENT
  Age: 54 Year
  Sex: Female

DRUGS (1)
  1. METRONIDAZOLE [Suspect]
     Indication: TOOTH INFECTION
     Dosage: 400 MG TID ORAL
     Route: 048
     Dates: start: 20120227, end: 20120227

REACTIONS (5)
  - SEPSIS [None]
  - NAUSEA [None]
  - HYPERSENSITIVITY [None]
  - ARTHRALGIA [None]
  - MYALGIA [None]
